FAERS Safety Report 10527669 (Version 1)
Quarter: 2014Q4

REPORT INFORMATION
  Report Type: Spontaneous
  Country: US (occurrence: None)
  Receive Date: 20141016
  Receipt Date: 20141016
  Transmission Date: 20150528
  Serious: Yes (Other)
  Sender: FDA-Public Use
  Company Number: None

PATIENT
  Age: 41 Year
  Sex: Male
  Weight: 84 kg

DRUGS (14)
  1. CELLCEPT 1500MG BID [Concomitant]
  2. PREDNISONE 15MG QD [Concomitant]
  3. REMICADE 750MG IV Q 4 WEEKS [Concomitant]
  4. SYMBICORT 160/4.5 2 PUFFS BID [Concomitant]
  5. PROMETHAZINE 12.5MG PRN [Concomitant]
  6. ACTHAR [Suspect]
     Active Substance: CORTICOTROPIN
     Indication: SARCOIDOSIS
     Route: 058
     Dates: start: 20140718, end: 20140801
  7. HYCOSAMINE 0.125MG QID PRN [Concomitant]
  8. METHOCARBAMOL 1500MG BID [Concomitant]
  9. LISINOPRIL 20MG QD [Concomitant]
  10. RANITIDINE 150MG BID [Concomitant]
  11. VERAPAMIL 240MG BID [Concomitant]
  12. MINOCYCLINE 100MG BID [Concomitant]
  13. PERCOCET 10/325 Q 6 HOURS PRN [Concomitant]
  14. NEURONTIN 900MG TID [Concomitant]

REACTIONS (4)
  - Productive cough [None]
  - Oral candidiasis [None]
  - Pulmonary cavitation [None]
  - Cryptococcosis [None]

NARRATIVE: CASE EVENT DATE: 20140923
